FAERS Safety Report 9616814 (Version 1)
Quarter: 2013Q4

REPORT INFORMATION
  Report Type: Spontaneous
  Country: US (occurrence: US)
  Receive Date: 20131011
  Receipt Date: 20131011
  Transmission Date: 20140711
  Serious: No
  Sender: FDA-Public Use
  Company Number: US-PFIZER INC-2013288951

PATIENT
  Age: 71 Year
  Sex: Female
  Weight: 43.54 kg

DRUGS (6)
  1. TOVIAZ [Suspect]
     Indication: BLADDER DISORDER
     Dosage: 4 MG, DAILY
     Route: 048
     Dates: start: 20131002
  2. DETROL [Suspect]
     Indication: BLADDER DISORDER
     Dosage: UNK
  3. LIPITOR [Concomitant]
     Indication: BLOOD CHOLESTEROL ABNORMAL
     Dosage: 40 MG, DAILY
  4. AGGRENOX [Concomitant]
     Indication: TRANSIENT ISCHAEMIC ATTACK
     Dosage: 25/200MG EVERY ALTERNATE DAY
  5. CALCIUM [Concomitant]
     Dosage: DAILY
  6. VITAMIN C [Concomitant]
     Dosage: DAILY

REACTIONS (4)
  - Nervousness [Unknown]
  - Feeling abnormal [Unknown]
  - Drug intolerance [Unknown]
  - Drug ineffective [Unknown]
